FAERS Safety Report 5578627-3 (Version None)
Quarter: 2007Q4

REPORT INFORMATION
  Report Type: 
  Country: None (occurrence: None)
  Receive Date: 20071227
  Receipt Date: 20071227
  Transmission Date: 20080405
  Serious: Yes (Hospitalization)
  Sender: FDA-Public Use
  Company Number: None

PATIENT
  Age: 84 Year
  Sex: Female
  Weight: 84.8 kg

DRUGS (22)
  1. LOVENOX [Suspect]
     Indication: ATRIAL FIBRILLATION
     Dosage: 80 MG SQ Q12H SQ
     Route: 058
     Dates: start: 20070711, end: 20070722
  2. ASPIRIN [Suspect]
     Indication: CARDIOVASCULAR EVENT PROPHYLAXIS
     Dosage: 81MG DAILY PO
     Route: 048
     Dates: start: 20070708, end: 20070722
  3. AMIODARONE HCL [Concomitant]
  4. ASPIRIN [Concomitant]
  5. CALCITONIN-SALMON [Concomitant]
  6. OSCAL [Concomitant]
  7. WARFARIN SODIUM [Concomitant]
  8. DIGOXIN [Concomitant]
  9. TPN WITHOUT FAT [Concomitant]
  10. LASIX [Concomitant]
  11. NEURONTIN [Concomitant]
  12. AMARYL [Concomitant]
  13. INSULIN [Concomitant]
  14. LEVAQUIN [Concomitant]
  15. SYNTHROID [Concomitant]
  16. METOPROLOL TARTRATE [Concomitant]
  17. FLAGYL [Concomitant]
  18. K+ [Concomitant]
  19. TYL [Concomitant]
  20. NORCO [Concomitant]
  21. MAALOX [Concomitant]
  22. DILAUDID [Concomitant]

REACTIONS (2)
  - ABDOMINAL WALL HAEMATOMA [None]
  - RETROPERITONEAL HAEMATOMA [None]
